FAERS Safety Report 7350263-8 (Version None)
Quarter: 2011Q1

REPORT INFORMATION
  Report Type: 
  Country: None (occurrence: None)
  Receive Date: 20110314
  Receipt Date: 20110301
  Transmission Date: 20110831
  Serious: Yes (Hospitalization, Other)
  Sender: FDA-Public Use
  Company Number: JP-JNJFOC-20100906522

PATIENT
  Sex: Female
  Weight: 53 kg

DRUGS (7)
  1. DOXIL [Suspect]
     Indication: OVARIAN CANCER RECURRENT
     Dosage: CYCLE 1
     Route: 042
  2. DOXIL [Suspect]
     Dosage: CYCLE 2
     Route: 042
  3. MOBIC [Concomitant]
     Indication: OVARIAN CANCER RECURRENT
     Route: 048
  4. DIPHENHYDRAMINE HYDROCHLORIDE [Concomitant]
     Indication: PROPHYLAXIS
     Route: 048
  5. AZUNOL [Concomitant]
     Indication: PROPHYLAXIS
     Route: 049
  6. MAGMITT [Concomitant]
     Indication: PROPHYLAXIS
     Route: 048
  7. NEUROVITAN [Concomitant]
     Indication: PROPHYLAXIS
     Route: 048

REACTIONS (2)
  - INTERSTITIAL LUNG DISEASE [None]
  - PALMAR-PLANTAR ERYTHRODYSAESTHESIA SYNDROME [None]
